FAERS Safety Report 20363502 (Version 2)
Quarter: 2022Q1

REPORT INFORMATION
  Report Type: Spontaneous
  Country: CA (occurrence: CA)
  Receive Date: 20220121
  Receipt Date: 20220210
  Transmission Date: 20220423
  Serious: Yes (Hospitalization, Other)
  Sender: FDA-Public Use
  Company Number: CA-LUPIN PHARMACEUTICALS INC.-2022-00661

PATIENT
  Age: 6 Decade
  Sex: Male

DRUGS (19)
  1. ARIPIPRAZOLE [Suspect]
     Active Substance: ARIPIPRAZOLE
     Indication: Depression
     Dosage: UNK
     Route: 065
  2. PAROXETINE [Suspect]
     Active Substance: PAROXETINE
     Indication: Depression
     Dosage: 10 MILLIGRAM, QD
     Route: 048
  3. PAROXETINE [Suspect]
     Active Substance: PAROXETINE
     Dosage: 20 MILLIGRAM, QD
     Route: 048
  4. RISPERIDONE [Suspect]
     Active Substance: RISPERIDONE
     Indication: Depression
     Dosage: UNK
     Route: 065
  5. ASENAPINE [Suspect]
     Active Substance: ASENAPINE
     Indication: Depression
     Dosage: 5 MILLIGRAM, BID
     Route: 048
  6. ASENAPINE [Suspect]
     Active Substance: ASENAPINE
     Dosage: 5 MILLIGRAM, QD
     Route: 048
  7. BENZTROPINE [Suspect]
     Active Substance: BENZTROPINE
     Indication: Depression
     Dosage: 2 MILLIGRAM, QD (QAM)
     Route: 048
  8. BENZTROPINE [Suspect]
     Active Substance: BENZTROPINE
     Indication: Extrapyramidal disorder
  9. BENZTROPINE [Suspect]
     Active Substance: BENZTROPINE
     Indication: Cogwheel rigidity
  10. BENZTROPINE [Suspect]
     Active Substance: BENZTROPINE
     Indication: Head titubation
  11. BISOPROLOL [Concomitant]
     Active Substance: BISOPROLOL
     Indication: Hypertension
     Dosage: 5 MILLIGRAM, QD
     Route: 048
  12. DDAVP [Concomitant]
     Active Substance: DESMOPRESSIN ACETATE
     Indication: Nephrogenic diabetes insipidus
     Dosage: 240 MILLIGRAM, QD
     Route: 048
  13. DIVALPROEX SODIUM [Concomitant]
     Active Substance: DIVALPROEX SODIUM
     Indication: Bipolar disorder
     Dosage: 500 MILLIGRAM, QD (QAM)
     Route: 048
  14. DIVALPROEX SODIUM [Concomitant]
     Active Substance: DIVALPROEX SODIUM
     Dosage: 1000 MILLIGRAM (QHS)
     Route: 048
  15. GABAPENTIN [Concomitant]
     Active Substance: GABAPENTIN
     Indication: Product used for unknown indication
     Dosage: 600 MILLIGRAM, TID (EVERY EIGHT HOURS)
     Route: 048
  16. MEDROXYPROGESTERONE [Concomitant]
     Active Substance: MEDROXYPROGESTERONE
     Indication: Product used for unknown indication
     Dosage: 200 MILLIGRAM, QD
     Route: 048
  17. MEDROXYPROGESTERONE [Concomitant]
     Active Substance: MEDROXYPROGESTERONE
     Dosage: 200 MILLIGRAM
     Route: 030
  18. QUINAPRIL [Concomitant]
     Active Substance: QUINAPRIL
     Indication: Product used for unknown indication
     Dosage: 20 MILLIGRAM, QD
     Route: 048
  19. ROSUVASTATIN [Concomitant]
     Active Substance: ROSUVASTATIN
     Indication: Dyslipidaemia
     Dosage: 200 MILLIGRAM, QD
     Route: 048

REACTIONS (4)
  - Anticholinergic syndrome [Recovered/Resolved]
  - Toxicity to various agents [Unknown]
  - Sedation complication [Unknown]
  - Delirium [Recovered/Resolved]
